FAERS Safety Report 8621654-X (Version None)
Quarter: 2012Q3

REPORT INFORMATION
  Report Type: 
  Country: None (occurrence: None)
  Receive Date: 20120817
  Receipt Date: 20120817
  Transmission Date: 20120928
  Serious: Yes (Other)
  Sender: FDA-Public Use
  Company Number: None

PATIENT
  Sex: Male
  Weight: 90.7194 kg

DRUGS (1)
  1. ETOMIDATE [Suspect]
     Dosage: 30MG 1X IV
     Route: 042

REACTIONS (1)
  - NO THERAPEUTIC RESPONSE [None]
